FAERS Safety Report 8520753-0 (Version None)
Quarter: 2012Q3

REPORT INFORMATION
  Report Type: 
  Country: None (occurrence: None)
  Receive Date: 20120719
  Receipt Date: 20120711
  Transmission Date: 20120928
  Serious: Yes (Other)
  Sender: FDA-Public Use
  Company Number: CA-PFIZER INC-2012136148

PATIENT
  Age: 15 Year
  Sex: Female

DRUGS (1)
  1. EPIPEN [Suspect]
     Indication: ANAPHYLACTIC REACTION
     Dosage: UNK
     Dates: start: 20120604, end: 20120604

REACTIONS (3)
  - PRODUCT QUALITY ISSUE [None]
  - ANAPHYLACTIC REACTION [None]
  - DRUG INEFFECTIVE [None]
